FAERS Safety Report 20798911 (Version 1)
Quarter: 2022Q2

REPORT INFORMATION
  Report Type: Spontaneous
  Country: CA (occurrence: CA)
  Receive Date: 20220507
  Receipt Date: 20220507
  Transmission Date: 20220720
  Serious: Yes (Other)
  Sender: FDA-Public Use
  Company Number: CA-TEVA-2022-CA-2032805

PATIENT
  Age: 59 Year
  Sex: Male

DRUGS (1)
  1. PREDNISONE [Suspect]
     Active Substance: PREDNISONE
     Dosage: GONE DOWN TO 10MG
     Route: 048

REACTIONS (1)
  - Cushing^s syndrome [Unknown]

NARRATIVE: CASE EVENT DATE: 20220409
